FAERS Safety Report 10442842 (Version 2)
Quarter: 2014Q3

REPORT INFORMATION
  Report Type: Other
  Country: DE (occurrence: DE)
  Receive Date: 20140909
  Receipt Date: 20140911
  Transmission Date: 20150326
  Serious: Yes (Other)
  Sender: FDA-Public Use
  Company Number: DE-MYLAN-2014M1003148

PATIENT

DRUGS (4)
  1. PRESINOL [Concomitant]
     Active Substance: METHYLDOPA
     Indication: HYPERTENSION
     Dosage: 500 MG, BID, (1000 MG/D ) 24.6. - 37.4. GESTATIONAL WEEK
     Route: 048
     Dates: start: 20131126, end: 20140223
  2. METFORMIN [Suspect]
     Active Substance: METFORMIN HYDROCHLORIDE
     Indication: POLYCYSTIC OVARIES
     Dosage: 1000 MG, BID, (2000 MG/D ) 0. - 24.5. GESTATIONAL WEEK
     Route: 048
     Dates: start: 20130605, end: 20131125
  3. L-THYROX [Concomitant]
     Active Substance: LEVOTHYROXINE SODIUM
     Indication: HYPOTHYROIDISM
     Dosage: 125 (?G/D) 0. - 37.4. GESTATIONAL WEEK
     Route: 048
     Dates: start: 20130605, end: 20140223
  4. BLOPRESS [Suspect]
     Active Substance: CANDESARTAN CILEXETIL
     Indication: HYPERTENSION
     Dosage: 4 MG, QD ,(4 MG/D ) 0. - 24.5. GESTATIONAL WEEK
     Route: 048
     Dates: start: 20130605, end: 20131125

REACTIONS (2)
  - Exposure during pregnancy [Unknown]
  - Oligohydramnios [Recovered/Resolved]
